FAERS Safety Report 9115970 (Version 1)
Quarter: 2013Q1

REPORT INFORMATION
  Report Type: Spontaneous
  Country: US (occurrence: US)
  Receive Date: 20130225
  Receipt Date: 20130225
  Transmission Date: 20140127
  Serious: Yes (Other)
  Sender: FDA-Public Use
  Company Number: US-BAYER-2013-023732

PATIENT
  Sex: 0

DRUGS (3)
  1. ALEVE CAPLET/TABLET,MIDOL EXTENDED RELIEF CAPLET [Suspect]
     Dosage: 16 DF, UNK
  2. OMEPRAZOLE [Concomitant]
  3. ANTACIDS [Concomitant]

REACTIONS (4)
  - Overdose [None]
  - Diverticulitis [None]
  - Sigmoidectomy [None]
  - Dyspepsia [None]
